FAERS Safety Report 5396584-X (Version None)
Quarter: 2007Q3

REPORT INFORMATION
  Report Type: 
  Country: None (occurrence: None)
  Receive Date: 20070725
  Receipt Date: 20070723
  Transmission Date: 20080115
  Serious: Yes (Other)
  Sender: FDA-Public Use
  Company Number: US-BRISTOL-MYERS SQUIBB COMPANY-13854344

PATIENT
  Age: 68 Year
  Sex: Male
  Weight: 113 kg

DRUGS (3)
  1. TEQUIN [Suspect]
     Indication: URINARY TRACT INFECTION
     Dates: start: 20050526
  2. SEPTRA [Concomitant]
  3. PROPRANOLOL [Concomitant]

REACTIONS (3)
  - GALLBLADDER DISORDER [None]
  - HYPERHIDROSIS [None]
  - PALPITATIONS [None]
